FAERS Safety Report 13983816 (Version 2)
Quarter: 2017Q4

REPORT INFORMATION
  Report Type: Spontaneous
  Country: JP (occurrence: JP)
  Receive Date: 20170918
  Receipt Date: 20171017
  Transmission Date: 20180321
  Serious: Yes (Life-Threatening, Hospitalization)
  Sender: FDA-Public Use
  Company Number: JP-PFIZER INC-2017395671

PATIENT
  Age: 85 Year
  Sex: Female
  Weight: 45 kg

DRUGS (2)
  1. INLYTA [Suspect]
     Active Substance: AXITINIB
     Indication: METASTATIC RENAL CELL CARCINOMA
     Dosage: 3 MG, 2X/DAY (EACH AFTER BREAKFAST AND SUPPER)
     Route: 048
     Dates: start: 20161116, end: 20161203
  2. OLMETEC [Suspect]
     Active Substance: OLMESARTAN MEDOXOMIL
     Indication: HYPERTENSION
     Dosage: 10 MG, 1X/DAY
     Route: 048
     Dates: start: 201506, end: 20161203

REACTIONS (3)
  - Hyperkalaemia [Recovered/Resolved]
  - Sinus arrest [Recovered/Resolved]
  - Blood magnesium increased [Unknown]

NARRATIVE: CASE EVENT DATE: 20161203
